FAERS Safety Report 5229226-4 (Version None)
Quarter: 2007Q1

REPORT INFORMATION
  Report Type: 
  Country: None (occurrence: None)
  Receive Date: 20070205
  Receipt Date: 20070126
  Transmission Date: 20070707
  Serious: Yes (Congenital Anomaly)
  Sender: FDA-Public Use
  Company Number: US-ABBOTT-07P-163-0355435-00

PATIENT
  Sex: Female
  Weight: 68 kg

DRUGS (7)
  1. HUMIRA [Suspect]
     Indication: CROHN'S DISEASE
     Route: 058
     Dates: start: 20050524, end: 20060425
  2. COMMERCIAL HUMIRA [Concomitant]
     Indication: CROHN'S DISEASE
  3. PRENATAL VITAMIN NOS [Concomitant]
     Indication: PREGNANCY
     Route: 048
     Dates: start: 20060401, end: 20061227
  4. EUGYNON [Concomitant]
     Indication: CONTRACEPTION
     Route: 048
  5. MERCAPTOPURINE [Concomitant]
     Indication: CROHN'S DISEASE
     Route: 048
     Dates: start: 20060401, end: 20060510
  6. MERCAPTOPURINE [Concomitant]
     Route: 048
     Dates: start: 20060510, end: 20061227
  7. IBUPROFEN [Concomitant]
     Indication: BACK PAIN
     Dosage: 3 PILLS TOTAL
     Route: 048
     Dates: start: 20060401, end: 20061231

REACTIONS (1)
  - VENTRICULAR SEPTAL DEFECT [None]
